FAERS Safety Report 7811736-4 (Version None)
Quarter: 2011Q4

REPORT INFORMATION
  Report Type: 
  Country: None (occurrence: None)
  Receive Date: 20111013
  Receipt Date: 20110930
  Transmission Date: 20120403
  Serious: No
  Sender: FDA-Public Use
  Company Number: US-B.I. PHARMACEUTICALS,INC./RIDGEFIELD-2011-BP-20346BP

PATIENT
  Age: 73 Year
  Sex: Female
  Weight: 62.59 kg

DRUGS (4)
  1. DUONEB [Suspect]
  2. BUPROPION HCL [Concomitant]
     Dosage: 300 MG
  3. SPIRIVA [Suspect]
     Dates: end: 20110902
  4. COMBIVENT [Suspect]

REACTIONS (2)
  - ANTICHOLINERGIC SYNDROME [None]
  - DIZZINESS [None]
